FAERS Safety Report 20921014 (Version 2)
Quarter: 2022Q2

REPORT INFORMATION
  Report Type: Spontaneous
  Country: IN (occurrence: IN)
  Receive Date: 20220606
  Receipt Date: 20220609
  Transmission Date: 20220721
  Serious: No
  Sender: FDA-Public Use
  Company Number: IN-PFIZER INC-202100908696

PATIENT
  Age: 69 Year
  Sex: Female
  Weight: 82.2 kg

DRUGS (8)
  1. PALBOCICLIB [Suspect]
     Active Substance: PALBOCICLIB
     Indication: Breast cancer female
     Dosage: 125 MG, 1X/DAY
     Route: 048
     Dates: start: 20210610
  2. PALBOCICLIB [Suspect]
     Active Substance: PALBOCICLIB
     Indication: Metastases to bone
  3. LETROZOLE [Concomitant]
     Active Substance: LETROZOLE
  4. SHELCAL [CALCIUM CARBONATE;COLECALCIFEROL] [Concomitant]
  5. ZA [Concomitant]
  6. FOLIMAX [Concomitant]
     Dosage: UNK
  7. ZOLEDRONIC ACID [Concomitant]
     Active Substance: ZOLEDRONIC ACID
     Dosage: (4MG) IN 100ML NS IV OVER 30 MINUTES
     Route: 042
  8. D3 VITAMIN [Concomitant]
     Dosage: 60000 IU (ONCE/MONTH)

REACTIONS (5)
  - Haemoglobin decreased [Unknown]
  - White blood cell count decreased [Unknown]
  - Platelet count decreased [Unknown]
  - Oedema [Unknown]
  - Neutrophil count decreased [Unknown]
